FAERS Safety Report 24798177 (Version 2)
Quarter: 2025Q1

REPORT INFORMATION
  Report Type: Spontaneous
  Country: US (occurrence: US)
  Receive Date: 20250102
  Receipt Date: 20250102
  Transmission Date: 20250409
  Serious: Yes (Other)
  Sender: ROCHE
  Company Number: US-ROCHE-10000168777

PATIENT
  Age: 87 Year

DRUGS (1)
  1. ACTEMRA [Suspect]
     Active Substance: TOCILIZUMAB
     Indication: Giant cell arteritis
     Route: 065

REACTIONS (5)
  - Tooth loss [Unknown]
  - Tooth fracture [Unknown]
  - Tooth extraction [Unknown]
  - Speech disorder [Unknown]
  - Blindness unilateral [Unknown]
